FAERS Safety Report 5588162-4 (Version None)
Quarter: 2008Q1

REPORT INFORMATION
  Report Type: 
  Country: None (occurrence: None)
  Receive Date: 20080109
  Receipt Date: 20080109
  Transmission Date: 20080703
  Serious: Yes (Hospitalization)
  Sender: FDA-Public Use
  Company Number: None

PATIENT
  Age: 83 Year
  Sex: Male

DRUGS (1)
  1. WARFARIN SODIUM [Suspect]
     Indication: DEEP VEIN THROMBOSIS
     Dosage: 5MG EVERY DAY PO
     Route: 048
     Dates: start: 20070727

REACTIONS (5)
  - ALCOHOL USE [None]
  - ARTHRALGIA [None]
  - INTERNATIONAL NORMALISED RATIO DECREASED [None]
  - MUSCLE HAEMORRHAGE [None]
  - ORAL INTAKE REDUCED [None]
